FAERS Safety Report 23576603 (Version 3)
Quarter: 2024Q2

REPORT INFORMATION
  Report Type: Report from Study
  Country: US (occurrence: US)
  Receive Date: 20240228
  Receipt Date: 20240409
  Transmission Date: 20240716
  Serious: Yes (Death, Hospitalization)
  Sender: FDA-Public Use
  Company Number: US-JNJFOC-20240272013

PATIENT
  Age: 68 Year
  Sex: Female
  Weight: 47.67 kg

DRUGS (5)
  1. SPRAVATO [Suspect]
     Active Substance: ESKETAMINE
     Indication: Depression
     Dosage: ^56 MG, 16 TOTAL DOSES^
     Dates: start: 20230815, end: 20231221
  2. LAMICTAL [Concomitant]
     Active Substance: LAMOTRIGINE
     Indication: Affective disorder
     Dosage: START DATE-21/JUL-UNSPECIFIED YEAR
     Route: 048
     Dates: end: 20240104
  3. DESVENLAFAXINE [Concomitant]
     Active Substance: DESVENLAFAXINE
     Indication: Affective disorder
     Dosage: START DATE-21/DEC-UNSPECIFIED YEAR
     Route: 048
     Dates: end: 20240104
  4. REMERON [Concomitant]
     Active Substance: MIRTAZAPINE
     Indication: Insomnia
     Dosage: START DATE-22/OCT-UNSPECIFIED YEAR
     Route: 048
     Dates: end: 20240104
  5. XANAX [Concomitant]
     Active Substance: ALPRAZOLAM
     Indication: Anxiety
     Dosage: START DATE-21/DEC-UNSPECIFIED YEAR
     Route: 048
     Dates: end: 20240104

REACTIONS (2)
  - Cerebrovascular accident [Fatal]
  - Aggression [Fatal]

NARRATIVE: CASE EVENT DATE: 20230101
